FAERS Safety Report 4298727-8 (Version None)
Quarter: 2004Q1

REPORT INFORMATION
  Report Type: 
  Country: None (occurrence: None)
  Receive Date: 20040126
  Receipt Date: 20030911
  Transmission Date: 20041129
  Serious: No
  Sender: FDA-Public Use
  Company Number: USA030946913

PATIENT
  Age: 34 Year
  Sex: Male

DRUGS (2)
  1. STRATTERA [Suspect]
     Indication: ATTENTION DEFICIT/HYPERACTIVITY DISORDER
     Dosage: 40 MG/DAY
     Dates: start: 20030911
  2. XANAX [Concomitant]

REACTIONS (3)
  - FEELING HOT [None]
  - NAUSEA [None]
  - NERVOUSNESS [None]
